FAERS Safety Report 8052460-5 (Version None)
Quarter: 2012Q1

REPORT INFORMATION
  Report Type: 
  Country: None (occurrence: None)
  Receive Date: 20120118
  Receipt Date: 20120112
  Transmission Date: 20120608
  Serious: Yes (Other)
  Sender: FDA-Public Use
  Company Number: US-PFIZER INC-2012010071

PATIENT
  Sex: Male

DRUGS (2)
  1. GENOTROPIN [Suspect]
     Indication: MYASTHENIA GRAVIS
  2. GENOTROPIN [Suspect]
     Indication: OFF LABEL USE
     Dosage: UNK

REACTIONS (1)
  - CORONARY ARTERY BYPASS [None]
